FAERS Safety Report 6968680-4 (Version None)
Quarter: 2010Q3

REPORT INFORMATION
  Report Type: 
  Country: None (occurrence: None)
  Receive Date: 20100907
  Receipt Date: 20100804
  Transmission Date: 20110219
  Serious: No
  Sender: FDA-Public Use
  Company Number: US-BAYER-201019327BCC

PATIENT
  Age: 86 Year
  Sex: Female
  Weight: 63 kg

DRUGS (3)
  1. ALEVE [Suspect]
     Indication: BACK PAIN
     Dosage: TOTAL DAILY DOSE: 1320 MG  UNIT DOSE: 220 MG
     Route: 048
     Dates: start: 20100802
  2. BENICAR [Concomitant]
     Route: 065
  3. UNKNOWN THYROID MEDICATION [Concomitant]
     Route: 065

REACTIONS (1)
  - INSOMNIA [None]
